FAERS Safety Report 7342046-X (Version None)
Quarter: 2011Q1

REPORT INFORMATION
  Report Type: 
  Country: None (occurrence: None)
  Receive Date: 20110309
  Receipt Date: 20110215
  Transmission Date: 20110831
  Serious: No
  Sender: FDA-Public Use
  Company Number: US-B.I. PHARMACEUTICALS,INC./RIDGEFIELD-2011-BP-05695BP

PATIENT
  Sex: Female

DRUGS (13)
  1. POTASSIUM [Concomitant]
     Indication: PROPHYLAXIS
  2. ASPIRIN [Concomitant]
     Indication: PROPHYLAXIS
  3. SINGULAIR [Concomitant]
     Indication: SEASONAL ALLERGY
  4. PRILOSEC [Concomitant]
     Indication: DYSPEPSIA
  5. COQ-10 [Concomitant]
     Indication: PROPHYLAXIS
  6. MAGNESIUM [Concomitant]
     Indication: PROPHYLAXIS
  7. BISOPROLOL FUMARATE [Concomitant]
     Indication: HYPERTENSION
  8. MULTAQ [Concomitant]
     Indication: ATRIAL FIBRILLATION
  9. METHIMAZOLE [Concomitant]
     Indication: HYPOTHYROIDISM
  10. CITRACAL [Concomitant]
     Indication: PROPHYLAXIS
  11. CLARITIN [Concomitant]
     Indication: SEASONAL ALLERGY
  12. LASIX [Concomitant]
     Indication: PROPHYLAXIS
  13. PRADAXA [Suspect]
     Indication: ATRIAL FIBRILLATION
     Dosage: 150 MG
     Route: 048
     Dates: start: 20110211

REACTIONS (1)
  - MUSCLE SPASMS [None]
